FAERS Safety Report 10175682 (Version 2)
Quarter: 2014Q2

REPORT INFORMATION
  Report Type: Spontaneous
  Country: US (occurrence: US)
  Receive Date: 20140516
  Receipt Date: 20140523
  Transmission Date: 20141212
  Serious: No
  Sender: FDA-Public Use
  Company Number: US-009507513-1405USA007110

PATIENT
  Age: 23 Year
  Sex: 0
  Weight: 91 kg

DRUGS (1)
  1. NEXPLANON [Suspect]
     Dosage: 1ROD/THREE YEARS
     Route: 059
     Dates: start: 20140416

REACTIONS (5)
  - Device expulsion [Unknown]
  - Limb discomfort [Unknown]
  - Device dislocation [Unknown]
  - Device kink [Unknown]
  - No adverse event [Unknown]
